FAERS Safety Report 20486010 (Version 1)
Quarter: 2022Q1

REPORT INFORMATION
  Report Type: Spontaneous
  Country: DE (occurrence: None)
  Receive Date: 20220217
  Receipt Date: 20220217
  Transmission Date: 20220424
  Serious: Yes (Death, Hospitalization)
  Sender: FDA-Public Use
  Company Number: DE-ROCHE-3019588

PATIENT
  Age: 68 Year
  Sex: Female

DRUGS (5)
  1. OCREVUS [Suspect]
     Active Substance: OCRELIZUMAB
     Indication: Primary progressive multiple sclerosis
     Route: 042
     Dates: start: 20210617
  2. OCREVUS [Suspect]
     Active Substance: OCRELIZUMAB
     Route: 042
     Dates: start: 20210617
  3. TIZANIDINE [Concomitant]
     Active Substance: TIZANIDINE
     Indication: Cardiac failure
  4. METOPROLOL [Concomitant]
     Active Substance: METOPROLOL
     Indication: Cardiac failure
  5. GABAPENTIN [Concomitant]
     Active Substance: GABAPENTIN

REACTIONS (3)
  - Atrial fibrillation [Unknown]
  - Cardiac arrest [Fatal]
  - Dyspnoea [Unknown]
